FAERS Safety Report 5063118-9 (Version None)
Quarter: 2006Q3

REPORT INFORMATION
  Report Type: 
  Country: None (occurrence: None)
  Receive Date: 20060727
  Receipt Date: 20060718
  Transmission Date: 20061208
  Serious: Yes (Disabling)
  Sender: FDA-Public Use
  Company Number: PHRM2006FR02146

PATIENT
  Age: 63 Year
  Sex: Female

DRUGS (3)
  1. PEVARYL [Concomitant]
     Route: 061
  2. DI-ANTALVIC [Concomitant]
     Dosage: 6 TO 8 CAPSULES DAILY
     Route: 048
  3. LAMISIL [Suspect]
     Indication: TRICHOPHYTON INFECTION
     Dosage: 250 MG, QD

REACTIONS (3)
  - GRANULOMA SKIN [None]
  - PAIN [None]
  - SUBCUTANEOUS NODULE [None]
